FAERS Safety Report 12351446 (Version 1)
Quarter: 2016Q2

REPORT INFORMATION
  Report Type: Report from Study
  Country: CA (occurrence: CA)
  Receive Date: 20160510
  Receipt Date: 20160510
  Transmission Date: 20160815
  Serious: Yes (Hospitalization, Other)
  Sender: FDA-Public Use
  Company Number: CA-VALIDUS PHARMACEUTICALS LLC-CA-2016VAL001450

PATIENT
  Age: 82 Year
  Sex: Female

DRUGS (2)
  1. SOMATULINE                         /01330102/ [Suspect]
     Active Substance: LANREOTIDE ACETATE
     Indication: PANCREATIC NEUROENDOCRINE TUMOUR
     Dosage: 120 MG, MONTHLY
     Route: 058
     Dates: start: 20150928, end: 20160412
  2. LASIX [Suspect]
     Active Substance: FUROSEMIDE
     Indication: PRODUCT USED FOR UNKNOWN INDICATION
     Dosage: UNK
     Dates: end: 20160411

REACTIONS (8)
  - Ascites [Unknown]
  - Gait disturbance [Unknown]
  - Dehydration [Unknown]
  - Syncope [Recovered/Resolved]
  - Presyncope [Unknown]
  - Asthenia [Unknown]
  - Abdominal pain [Unknown]
  - Abdominal distension [Unknown]

NARRATIVE: CASE EVENT DATE: 201603
